FAERS Safety Report 5818221-X (Version None)
Quarter: 2008Q3

REPORT INFORMATION
  Report Type: 
  Country: None (occurrence: None)
  Receive Date: 20080722
  Receipt Date: 20080416
  Transmission Date: 20090109
  Serious: No
  Sender: FDA-Public Use
  Company Number: US-BAYER-200811721BCC

PATIENT
  Age: 50 Year
  Sex: Female
  Weight: 59 kg

DRUGS (5)
  1. ALEVE (CAPLET) [Suspect]
     Indication: PAIN IN EXTREMITY
     Dosage: TOTAL DAILY DOSE: 220 MG  UNIT DOSE: 220 MG
     Route: 048
     Dates: start: 20080316
  2. GENERIC VITAMIN [Concomitant]
  3. DHEA [Concomitant]
  4. CALCIUM [Concomitant]
  5. FLAX SEED OIL [Concomitant]

REACTIONS (2)
  - HEMICEPHALALGIA [None]
  - PAIN IN EXTREMITY [None]
